FAERS Safety Report 5357012-3 (Version None)
Quarter: 2007Q2

REPORT INFORMATION
  Report Type: 
  Country: None (occurrence: None)
  Receive Date: 20070612
  Receipt Date: 20070612
  Transmission Date: 20071010
  Serious: No
  Sender: FDA-Public Use
  Company Number: None

PATIENT
  Age: 68 Year
  Sex: Male
  Weight: 104.3273 kg

DRUGS (5)
  1. PRILOSEC OTC [Suspect]
     Indication: GASTROOESOPHAGEAL REFLUX DISEASE
     Dosage: 20MG TWICE DAILY ORAL
     Route: 048
     Dates: start: 20070505
  2. PRILOSEC OTC [Suspect]
     Indication: GASTROOESOPHAGEAL REFLUX DISEASE
     Dosage: 20MG TWICE DAILY ORAL
     Route: 048
     Dates: start: 20070506
  3. VERAPAMIL [Concomitant]
  4. VASOTEC [Concomitant]
  5. DYAZIDE [Concomitant]

REACTIONS (14)
  - ABDOMINAL DISTENSION [None]
  - BACK PAIN [None]
  - BOWEL SOUNDS ABNORMAL [None]
  - CONFUSIONAL STATE [None]
  - DYSGEUSIA [None]
  - ERUCTATION [None]
  - EYE PRURITUS [None]
  - HEADACHE [None]
  - HYPERSOMNIA [None]
  - LETHARGY [None]
  - MYALGIA [None]
  - PAIN [None]
  - RESPIRATION ABNORMAL [None]
  - THROAT TIGHTNESS [None]
